FAERS Safety Report 6356540-1 (Version None)
Quarter: 2009Q3

REPORT INFORMATION
  Report Type: 
  Country: None (occurrence: None)
  Receive Date: 20090911
  Receipt Date: 20090911
  Transmission Date: 20100115
  Serious: Yes (Hospitalization)
  Sender: FDA-Public Use
  Company Number: None

PATIENT
  Sex: Male
  Weight: 68.0396 kg

DRUGS (1)
  1. VANCOMYCIN [Suspect]
     Indication: ABSCESS LIMB
     Dosage: 15 MG/KG EVERY 12 HOUR IV DRIP
     Route: 041
     Dates: start: 20090903, end: 20090908

REACTIONS (1)
  - RENAL FAILURE ACUTE [None]
